FAERS Safety Report 23747375 (Version 2)
Quarter: 2024Q2

REPORT INFORMATION
  Report Type: Spontaneous
  Country: MX (occurrence: MX)
  Receive Date: 20240416
  Receipt Date: 20240418
  Transmission Date: 20240715
  Serious: Yes (Other)
  Sender: FDA-Public Use
  Company Number: MX-MLMSERVICE-20240403-PI011335-00306-1

PATIENT
  Age: 20 Year
  Sex: Male

DRUGS (11)
  1. METHYLPREDNISOLONE [Suspect]
     Active Substance: METHYLPREDNISOLONE
     Indication: Immunosuppressant drug therapy
     Dosage: 750 MG
     Dates: start: 20230610
  2. THYMOGLOBULIN [Suspect]
     Active Substance: LAPINE T-LYMPHOCYTE IMMUNE GLOBULIN
     Indication: Immunosuppressant drug therapy
     Dosage: 100 MG
     Dates: start: 20230610
  3. TACROLIMUS [Suspect]
     Active Substance: TACROLIMUS
     Indication: Immunosuppressant drug therapy
     Dosage: 4-0-4
     Dates: start: 2023, end: 2023
  4. TACROLIMUS [Suspect]
     Active Substance: TACROLIMUS
     Dosage: 1 MG 50-5 08:00 AM AND 20 PM
  5. MYCOPHENOLATE MOFETIL [Suspect]
     Active Substance: MYCOPHENOLATE MOFETIL
     Indication: Immunosuppressant drug therapy
     Dosage: 2-0-2
     Dates: start: 2023, end: 2023
  6. MYCOPHENOLATE MOFETIL [Suspect]
     Active Substance: MYCOPHENOLATE MOFETIL
     Dosage: 500 MG, 2X/DAY (1-0-1)
     Dates: start: 2023
  7. PREDNISONE [Suspect]
     Active Substance: PREDNISONE
     Indication: Immunosuppressant drug therapy
     Dosage: 15 MG, DAILY (1-0-0)
     Dates: start: 2023, end: 2023
  8. PREDNISONE [Suspect]
     Active Substance: PREDNISONE
     Dosage: 5 MG EVERY 24 HOURS
     Route: 048
     Dates: start: 2023
  9. SULFAMETHOXAZOLE AND TRIMETHOPRIM [Suspect]
     Active Substance: SULFAMETHOXAZOLE\TRIMETHOPRIM
     Indication: Immunosuppressant drug therapy
     Dosage: 400/80, M-W-F-2 TABLET
     Dates: start: 2023, end: 2023
  10. VALGANCICLOVIR [Suspect]
     Active Substance: VALGANCICLOVIR
     Indication: Immunosuppressant drug therapy
     Dosage: UNK, 2X/DAY (1-0-1)
     Dates: start: 2023, end: 2023
  11. OMEPRAZOLE [Concomitant]
     Active Substance: OMEPRAZOLE
     Dosage: 40 MG, EVERY 24 HR
     Dates: start: 2023

REACTIONS (1)
  - Parvovirus B19 infection [Recovered/Resolved]

NARRATIVE: CASE EVENT DATE: 20230101
